FAERS Safety Report 7539916-6 (Version None)
Quarter: 2011Q2

REPORT INFORMATION
  Report Type: 
  Country: None (occurrence: None)
  Receive Date: 20110610
  Receipt Date: 20110609
  Transmission Date: 20111010
  Serious: Yes (Life-Threatening)
  Sender: FDA-Public Use
  Company Number: JP-B.I. PHARMACEUTICALS,INC./RIDGEFIELD-2011-BP-15013NB

PATIENT
  Age: 30 Year
  Sex: Male

DRUGS (1)
  1. PRADAXA [Suspect]
     Indication: OFF LABEL USE
     Dosage: 300 MG
     Route: 048
     Dates: start: 20110520, end: 20110608

REACTIONS (1)
  - MYOCARDIAL INFARCTION [None]
